FAERS Safety Report 7169589-6 (Version None)
Quarter: 2010Q4

REPORT INFORMATION
  Report Type: 
  Country: None (occurrence: None)
  Receive Date: 20101217
  Receipt Date: 20101209
  Transmission Date: 20110411
  Serious: No
  Sender: FDA-Public Use
  Company Number: JP-JNJFOC-20101202301

PATIENT
  Age: 77 Year

DRUGS (3)
  1. DUROTEP MT [Suspect]
     Indication: PAIN
     Route: 062
  2. DUROTEP MT [Suspect]
     Route: 062
  3. LOXONIN [Concomitant]
     Route: 048

REACTIONS (4)
  - DIZZINESS [None]
  - DRUG PRESCRIBING ERROR [None]
  - NAUSEA [None]
  - TREMOR [None]
